FAERS Safety Report 25815650 (Version 1)
Quarter: 2025Q3

REPORT INFORMATION
  Report Type: Spontaneous
  Country: EU (occurrence: EU)
  Receive Date: 20250918
  Receipt Date: 20250918
  Transmission Date: 20251021
  Serious: Yes (Life-Threatening, Hospitalization)
  Sender: ACCORD
  Company Number: None

PATIENT
  Age: 53 Year
  Sex: Female
  Weight: 65 kg

DRUGS (24)
  1. CARBOPLATIN [Suspect]
     Active Substance: CARBOPLATIN
     Indication: Metastatic uterine cancer
     Dates: start: 20250625, end: 20250625
  2. PEMBROLIZUMAB [Suspect]
     Active Substance: PEMBROLIZUMAB
     Indication: Metastatic uterine cancer
     Dates: start: 20250527, end: 20250527
  3. PACLITAXEL [Suspect]
     Active Substance: PACLITAXEL
     Indication: Metastatic uterine cancer
     Dates: start: 20250527, end: 20250527
  4. BEVACIZUMAB [Suspect]
     Active Substance: BEVACIZUMAB
     Indication: Metastatic uterine cancer
     Dates: start: 20250806, end: 20250806
  5. EMEND [Concomitant]
     Active Substance: APREPITANT
  6. PRIMPERAN [Concomitant]
     Active Substance: METOCLOPRAMIDE HYDROCHLORIDE
  7. PREDNISONE [Concomitant]
     Active Substance: PREDNISONE
  8. PANTOPRAZOLE [Concomitant]
     Active Substance: PANTOPRAZOLE
  9. FILGRASTIM [Concomitant]
     Active Substance: FILGRASTIM
  10. ONDANSETRON [Concomitant]
     Active Substance: ONDANSETRON
  11. OLANZAPINE [Concomitant]
     Active Substance: OLANZAPINE
  12. DIPROSONE [Concomitant]
     Active Substance: BETAMETHASONE DIPROPIONATE
     Indication: Drug eruption
     Dates: start: 20250730, end: 20250804
  13. CLOBETASOL PROPIONATE [Concomitant]
     Active Substance: CLOBETASOL PROPIONATE
     Indication: Drug eruption
     Dates: start: 20250620, end: 20250621
  14. ACETAMINOPHEN [Concomitant]
     Active Substance: ACETAMINOPHEN
  15. HYDROXYZINE [Concomitant]
     Active Substance: HYDROXYZINE HYDROCHLORIDE
  16. LEVOCETIRIZINE DIHYDROCHLORIDE [Concomitant]
     Active Substance: LEVOCETIRIZINE DIHYDROCHLORIDE
  17. PEMBROLIZUMAB [Suspect]
     Active Substance: PEMBROLIZUMAB
     Indication: Metastatic uterine cancer
     Dates: start: 20250716, end: 20250716
  18. CARBOPLATIN [Suspect]
     Active Substance: CARBOPLATIN
     Indication: Metastatic uterine cancer
     Dates: start: 20250527, end: 20250527
  19. CARBOPLATIN [Suspect]
     Active Substance: CARBOPLATIN
     Indication: Metastatic uterine cancer
     Dates: start: 20250716, end: 20250716
  20. CARBOPLATIN [Suspect]
     Active Substance: CARBOPLATIN
     Indication: Metastatic uterine cancer
     Dates: start: 20250806, end: 20250806
  21. PACLITAXEL [Suspect]
     Active Substance: PACLITAXEL
     Indication: Metastatic uterine cancer
     Dates: start: 20250625, end: 20250625
  22. PACLITAXEL [Suspect]
     Active Substance: PACLITAXEL
     Indication: Metastatic uterine cancer
     Dates: start: 20250716, end: 20250716
  23. PACLITAXEL [Suspect]
     Active Substance: PACLITAXEL
     Indication: Metastatic uterine cancer
     Dates: start: 20250806, end: 20250806
  24. CLOBETASOL PROPIONATE [Concomitant]
     Active Substance: CLOBETASOL PROPIONATE
     Indication: Drug eruption
     Dates: start: 20250724, end: 20250804

REACTIONS (2)
  - Toxic epidermal necrolysis [Not Recovered/Not Resolved]
  - Drug eruption [Not Recovered/Not Resolved]

NARRATIVE: CASE EVENT DATE: 20250603
